FAERS Safety Report 13075594 (Version 7)
Quarter: 2023Q2

REPORT INFORMATION
  Report Type: Spontaneous
  Country: US (occurrence: None)
  Receive Date: 20161230
  Receipt Date: 20230525
  Transmission Date: 20230721
  Serious: Yes (Life-Threatening, Other)
  Sender: FDA-Public Use
  Company Number: 2016SF36397

PATIENT
  Age: 22408 Day
  Sex: Female
  Weight: 64.4 kg

DRUGS (137)
  1. NEXIUM [Suspect]
     Active Substance: ESOMEPRAZOLE MAGNESIUM
     Route: 048
     Dates: start: 2010
  2. NEXIUM [Suspect]
     Active Substance: ESOMEPRAZOLE MAGNESIUM
     Route: 048
     Dates: start: 2011
  3. NEXIUM [Suspect]
     Active Substance: ESOMEPRAZOLE MAGNESIUM
     Route: 048
     Dates: start: 2012
  4. NEXIUM [Suspect]
     Active Substance: ESOMEPRAZOLE MAGNESIUM
     Route: 048
     Dates: start: 2013
  5. NEXIUM [Suspect]
     Active Substance: ESOMEPRAZOLE MAGNESIUM
     Route: 048
     Dates: start: 20151030, end: 20160216
  6. NEXIUM [Suspect]
     Active Substance: ESOMEPRAZOLE MAGNESIUM
     Dosage: GENERIC 40 MG
     Route: 048
     Dates: start: 20150903
  7. NEXIUM [Suspect]
     Active Substance: ESOMEPRAZOLE MAGNESIUM
     Dosage: 40 MG
     Route: 048
     Dates: start: 20151001
  8. NEXIUM [Suspect]
     Active Substance: ESOMEPRAZOLE MAGNESIUM
     Route: 048
     Dates: start: 2005, end: 2018
  9. PRILOSEC [Suspect]
     Active Substance: OMEPRAZOLE MAGNESIUM
     Route: 048
     Dates: start: 2005, end: 2018
  10. PRILOSEC [Suspect]
     Active Substance: OMEPRAZOLE MAGNESIUM
     Route: 048
     Dates: start: 20130404
  11. PRILOSEC [Suspect]
     Active Substance: OMEPRAZOLE MAGNESIUM
     Route: 048
     Dates: start: 20130501
  12. PRILOSEC [Suspect]
     Active Substance: OMEPRAZOLE MAGNESIUM
     Dosage: GENERIC
     Route: 048
     Dates: start: 20180112
  13. PRILOSEC [Suspect]
     Active Substance: OMEPRAZOLE MAGNESIUM
     Dosage: GENERIC
     Dates: start: 20180222
  14. PRILOSEC [Suspect]
     Active Substance: OMEPRAZOLE MAGNESIUM
     Dosage: GENERIC 20MG
     Dates: start: 20160419
  15. TAGAMET [Suspect]
     Active Substance: CIMETIDINE
  16. PEPCID [Suspect]
     Active Substance: FAMOTIDINE
  17. PREVACID [Suspect]
     Active Substance: LANSOPRAZOLE
     Dates: start: 20051229
  18. PREVACID [Suspect]
     Active Substance: LANSOPRAZOLE
     Dates: start: 20061101
  19. PREVACID [Suspect]
     Active Substance: LANSOPRAZOLE
     Dates: start: 200712
  20. PREVACID [Suspect]
     Active Substance: LANSOPRAZOLE
     Dates: start: 200812
  21. PREVACID [Suspect]
     Active Substance: LANSOPRAZOLE
     Dates: start: 200912
  22. PREVACID [Suspect]
     Active Substance: LANSOPRAZOLE
     Dosage: GENERIC
  23. PREVACID [Suspect]
     Active Substance: LANSOPRAZOLE
     Dates: start: 2005, end: 2018
  24. PROTONIX [Suspect]
     Active Substance: PANTOPRAZOLE SODIUM
     Dates: start: 2005, end: 2018
  25. PROTONIX [Suspect]
     Active Substance: PANTOPRAZOLE SODIUM
     Dosage: GENERIC
     Dates: start: 20181026
  26. PROTONIX [Suspect]
     Active Substance: PANTOPRAZOLE SODIUM
     Dosage: GENERIC
     Dates: start: 20150805
  27. PROTONIX [Suspect]
     Active Substance: PANTOPRAZOLE SODIUM
     Dosage: GENERIC
  28. ZANTAC [Suspect]
     Active Substance: RANITIDINE HYDROCHLORIDE
  29. METOCLOPRAMIDE [Concomitant]
     Active Substance: METOCLOPRAMIDE
  30. MOMETASONE [Concomitant]
     Active Substance: MOMETASONE
  31. NOVOLOG/FLEXPEN [Concomitant]
  32. ROSUVASTATIN [Concomitant]
     Active Substance: ROSUVASTATIN
  33. AMITRIPTYLINE [Concomitant]
     Active Substance: AMITRIPTYLINE
     Dates: start: 2018
  34. CLOPIDOGREL [Concomitant]
     Active Substance: CLOPIDOGREL BISULFATE
     Route: 065
     Dates: start: 20151027
  35. CLOPIDOGREL [Concomitant]
     Active Substance: CLOPIDOGREL BISULFATE
     Route: 065
     Dates: start: 2018
  36. FUROSEMIDE [Concomitant]
     Active Substance: FUROSEMIDE
     Route: 065
     Dates: start: 2018
  37. ACETAMINOPHEN\HYDROCODONE BITARTRATE [Concomitant]
     Active Substance: ACETAMINOPHEN\HYDROCODONE BITARTRATE
     Dates: start: 20150903
  38. LEVEMIR [Concomitant]
     Active Substance: INSULIN DETEMIR
  39. VITAMIN D [Concomitant]
     Active Substance: VITAMIN D NOS
     Dates: start: 20160125
  40. TUMS [Concomitant]
     Active Substance: CALCIUM CARBONATE
  41. ALKA-SELTZER [Concomitant]
     Active Substance: ANHYDROUS CITRIC ACID\ASPIRIN\SODIUM BICARBONATE
  42. LIDOCAINE [Concomitant]
     Active Substance: LIDOCAINE
     Dates: start: 20100929
  43. DIAZEPAM [Concomitant]
     Active Substance: DIAZEPAM
     Route: 065
     Dates: start: 20060712, end: 20061201
  44. DIAZEPAM [Concomitant]
     Active Substance: DIAZEPAM
     Route: 065
     Dates: start: 20070103, end: 20070629
  45. DIAZEPAM [Concomitant]
     Active Substance: DIAZEPAM
     Route: 065
     Dates: start: 20070322, end: 20070601
  46. DIAZEPAM [Concomitant]
     Active Substance: DIAZEPAM
     Route: 065
     Dates: start: 20070727, end: 20080922
  47. DIAZEPAM [Concomitant]
     Active Substance: DIAZEPAM
     Route: 065
     Dates: start: 20070825, end: 20071119
  48. DIAZEPAM [Concomitant]
     Active Substance: DIAZEPAM
     Route: 065
     Dates: start: 20081020, end: 20081120
  49. DIAZEPAM [Concomitant]
     Active Substance: DIAZEPAM
     Route: 065
     Dates: start: 20090107
  50. DIAZEPAM [Concomitant]
     Active Substance: DIAZEPAM
     Route: 065
     Dates: start: 20090316
  51. DIAZEPAM [Concomitant]
     Active Substance: DIAZEPAM
     Route: 065
     Dates: start: 20090414, end: 20150805
  52. DIAZEPAM [Concomitant]
     Active Substance: DIAZEPAM
     Route: 065
     Dates: start: 20150903
  53. PROAIR/ VENTOLIN [Concomitant]
     Dates: start: 20150903
  54. NOVOLIN NOS [Concomitant]
     Active Substance: INSULIN HUMAN
     Dates: start: 20150903
  55. ZOLPIDEM [Concomitant]
     Active Substance: ZOLPIDEM TARTRATE
     Dates: start: 20151127
  56. ATORVASTATIN [Concomitant]
     Active Substance: ATORVASTATIN
     Dates: start: 20151224
  57. CRESTOR [Concomitant]
     Active Substance: ROSUVASTATIN CALCIUM
     Route: 065
     Dates: start: 2009
  58. CRESTOR [Concomitant]
     Active Substance: ROSUVASTATIN CALCIUM
     Route: 065
     Dates: start: 2010
  59. CRESTOR [Concomitant]
     Active Substance: ROSUVASTATIN CALCIUM
     Route: 065
     Dates: start: 2011
  60. CRESTOR [Concomitant]
     Active Substance: ROSUVASTATIN CALCIUM
     Route: 065
     Dates: start: 2012
  61. CRESTOR [Concomitant]
     Active Substance: ROSUVASTATIN CALCIUM
     Route: 065
     Dates: start: 2012
  62. CRESTOR [Concomitant]
     Active Substance: ROSUVASTATIN CALCIUM
     Route: 065
     Dates: start: 20160216
  63. SUCRALFATE [Concomitant]
     Active Substance: SUCRALFATE
     Dates: start: 20160413
  64. MUPIROCIN [Concomitant]
     Active Substance: MUPIROCIN
     Dates: start: 20160614
  65. CYMBALTA [Concomitant]
     Active Substance: DULOXETINE HYDROCHLORIDE
     Route: 065
     Dates: start: 2013
  66. DIOVAN [Concomitant]
     Active Substance: VALSARTAN
     Route: 065
     Dates: start: 2005
  67. DIOVAN [Concomitant]
     Active Substance: VALSARTAN
     Route: 065
     Dates: start: 2006
  68. DIOVAN [Concomitant]
     Active Substance: VALSARTAN
     Route: 065
     Dates: start: 2007
  69. DIOVAN [Concomitant]
     Active Substance: VALSARTAN
     Route: 065
     Dates: start: 2008
  70. DIOVAN [Concomitant]
     Active Substance: VALSARTAN
     Route: 065
     Dates: start: 2009
  71. DIOVAN [Concomitant]
     Active Substance: VALSARTAN
     Route: 065
     Dates: start: 2010
  72. DIOVAN [Concomitant]
     Active Substance: VALSARTAN
     Route: 065
     Dates: start: 2011
  73. DIOVAN [Concomitant]
     Active Substance: VALSARTAN
     Route: 065
     Dates: start: 2012
  74. DIOVAN [Concomitant]
     Active Substance: VALSARTAN
     Route: 065
     Dates: start: 2013
  75. DIOVAN [Concomitant]
     Active Substance: VALSARTAN
     Route: 065
     Dates: start: 2014
  76. ESTRADIOL [Concomitant]
     Active Substance: ESTRADIOL
     Route: 065
     Dates: start: 2012
  77. ESTRADIOL [Concomitant]
     Active Substance: ESTRADIOL
     Route: 065
     Dates: start: 2013
  78. ESTRADIOL [Concomitant]
     Active Substance: ESTRADIOL
     Route: 065
     Dates: start: 2014
  79. ESTRADIOL [Concomitant]
     Active Substance: ESTRADIOL
     Route: 065
     Dates: start: 2015
  80. FAMOTIDINE [Concomitant]
     Active Substance: FAMOTIDINE
     Route: 065
     Dates: start: 2015
  81. FLUCONAZOLE [Concomitant]
     Active Substance: FLUCONAZOLE
     Route: 065
     Dates: start: 2008
  82. FLUCONAZOLE [Concomitant]
     Active Substance: FLUCONAZOLE
     Route: 065
     Dates: start: 2012
  83. FLUCONAZOLE [Concomitant]
     Active Substance: FLUCONAZOLE
     Route: 065
     Dates: start: 2009
  84. FLUCONAZOLE [Concomitant]
     Active Substance: FLUCONAZOLE
     Route: 065
     Dates: start: 2013
  85. FLUCONAZOLE [Concomitant]
     Active Substance: FLUCONAZOLE
     Route: 065
     Dates: start: 2014
  86. HYDROCHLOROTHIAZIDE [Concomitant]
     Active Substance: HYDROCHLOROTHIAZIDE
     Route: 065
     Dates: start: 2015
  87. HYDROCODONE [Concomitant]
     Active Substance: HYDROCODONE
     Dosage: 10/660
     Route: 065
     Dates: start: 2006
  88. HYDROCODONE [Concomitant]
     Active Substance: HYDROCODONE
     Dosage: 10/660
     Route: 065
     Dates: start: 2007
  89. HYDROCODONE [Concomitant]
     Active Substance: HYDROCODONE
     Dosage: 10/660
     Route: 065
     Dates: start: 2008
  90. HYDROCODONE [Concomitant]
     Active Substance: HYDROCODONE
     Dosage: 10/660
     Route: 065
     Dates: start: 2009
  91. HYDROCODONE [Concomitant]
     Active Substance: HYDROCODONE
     Dosage: 10/660
     Route: 065
     Dates: start: 2010
  92. HYDROCODONE [Concomitant]
     Active Substance: HYDROCODONE
     Dosage: 10/660
     Route: 065
     Dates: start: 2011
  93. HYDROCODONE [Concomitant]
     Active Substance: HYDROCODONE
     Dosage: 10/660
     Route: 065
     Dates: start: 2012
  94. HYDROCODONE [Concomitant]
     Active Substance: HYDROCODONE
     Dosage: 10/660
     Route: 065
     Dates: start: 2012
  95. HYDROCODONE [Concomitant]
     Active Substance: HYDROCODONE
     Dosage: 10/660
     Route: 065
     Dates: start: 2013
  96. HYDROCODONE [Concomitant]
     Active Substance: HYDROCODONE
     Dosage: 10/660
     Route: 065
     Dates: start: 2014
  97. HYDROCODONE [Concomitant]
     Active Substance: HYDROCODONE
     Dosage: 10/660
     Route: 065
     Dates: start: 2015
  98. HYDROCODONE [Concomitant]
     Active Substance: HYDROCODONE
     Dosage: 10/660
     Route: 065
     Dates: start: 2018
  99. LORATADINE [Concomitant]
     Active Substance: LORATADINE
     Route: 065
     Dates: start: 2012
  100. LORATADINE [Concomitant]
     Active Substance: LORATADINE
     Route: 065
     Dates: start: 2013
  101. LORATADINE [Concomitant]
     Active Substance: LORATADINE
     Route: 065
     Dates: start: 2014
  102. LORATADINE [Concomitant]
     Active Substance: LORATADINE
     Route: 065
     Dates: start: 2015
  103. LOSARTAN [Concomitant]
     Active Substance: LOSARTAN
     Route: 065
     Dates: start: 2015
  104. METOPROLOL [Concomitant]
     Active Substance: METOPROLOL
     Route: 065
     Dates: start: 2012
  105. METOPROLOL [Concomitant]
     Active Substance: METOPROLOL
     Route: 065
     Dates: start: 2013
  106. METOPROLOL [Concomitant]
     Active Substance: METOPROLOL
     Route: 065
     Dates: start: 2014
  107. MYRBETRIQ [Concomitant]
     Active Substance: MIRABEGRON
     Route: 065
     Dates: start: 2014
  108. NITROFURANTOIN [Concomitant]
     Active Substance: NITROFURANTOIN
     Route: 065
     Dates: start: 2013
  109. PRAVASTATIN [Concomitant]
     Active Substance: PRAVASTATIN
     Route: 065
     Dates: start: 2014
  110. TIZANIDINE [Concomitant]
     Active Substance: TIZANIDINE
     Route: 065
     Dates: start: 2009
  111. TIZANIDINE [Concomitant]
     Active Substance: TIZANIDINE
     Route: 065
     Dates: start: 2010
  112. TIZANIDINE [Concomitant]
     Active Substance: TIZANIDINE
     Route: 065
     Dates: start: 2011
  113. TIZANIDINE [Concomitant]
     Active Substance: TIZANIDINE
     Route: 065
     Dates: start: 2012
  114. TIZANIDINE [Concomitant]
     Active Substance: TIZANIDINE
     Route: 065
     Dates: start: 2018
  115. ZETIA [Concomitant]
     Active Substance: EZETIMIBE
     Route: 065
     Dates: start: 2012
  116. ZETIA [Concomitant]
     Active Substance: EZETIMIBE
     Route: 065
     Dates: start: 2013
  117. ZETIA [Concomitant]
     Active Substance: EZETIMIBE
     Route: 065
     Dates: start: 2014
  118. AMLODIPINE BESYLATE [Concomitant]
     Active Substance: AMLODIPINE BESYLATE
     Dates: start: 2018
  119. AVELOX [Concomitant]
     Active Substance: MOXIFLOXACIN HYDROCHLORIDE
     Dates: start: 2007
  120. AZITHROMYCIN [Concomitant]
     Active Substance: AZITHROMYCIN
     Route: 065
     Dates: start: 2018
  121. BACLOFEN [Concomitant]
     Active Substance: BACLOFEN
     Route: 065
     Dates: start: 2009
  122. CARISOPRODOL [Concomitant]
     Active Substance: CARISOPRODOL
     Route: 065
     Dates: start: 2006
  123. ONDANSETRON [Concomitant]
     Active Substance: ONDANSETRON
     Route: 065
     Dates: start: 2018
  124. SIMVASTATIN [Concomitant]
     Active Substance: SIMVASTATIN
     Dates: start: 20070413
  125. VYTORIN [Concomitant]
     Active Substance: EZETIMIBE\SIMVASTATIN
     Dosage: 10/20 TAB
     Dates: start: 2007
  126. ZYRTEC [Concomitant]
     Active Substance: CETIRIZINE HYDROCHLORIDE
     Dates: start: 2007
  127. PROMETHAZINE [Concomitant]
     Active Substance: PROMETHAZINE HYDROCHLORIDE
  128. ASPIRIN [Concomitant]
     Active Substance: ASPIRIN
  129. CLONIDINE [Concomitant]
     Active Substance: CLONIDINE
  130. VIMPAT [Concomitant]
     Active Substance: LACOSAMIDE
  131. PAROXETINE HYDROCHLORIDE [Concomitant]
     Active Substance: PAROXETINE HYDROCHLORIDE
  132. TRAZODONE [Concomitant]
     Active Substance: TRAZODONE HYDROCHLORIDE
  133. FLUTICASONE [Concomitant]
     Active Substance: FLUTICASONE
  134. ARGININE ASPARTATE/CARNITINE HYDROCHLORIDE/CYPROHEPTADINE HYDROCHLORID [Concomitant]
  135. PREDNISOLONE [Concomitant]
     Active Substance: PREDNISOLONE
  136. MIRTAZAPINE [Concomitant]
     Active Substance: MIRTAZAPINE
  137. ERYTHROMYCIN [Concomitant]
     Active Substance: ERYTHROMYCIN

REACTIONS (10)
  - Renal injury [Unknown]
  - Chronic kidney disease [Unknown]
  - Diabetic ketoacidosis [Unknown]
  - Renal failure [Not Recovered/Not Resolved]
  - End stage renal disease [Unknown]
  - Acute kidney injury [Unknown]
  - Nephrogenic anaemia [Not Recovered/Not Resolved]
  - Polyp [Not Recovered/Not Resolved]
  - Anxiety [Unknown]
  - Depression [Unknown]

NARRATIVE: CASE EVENT DATE: 20111201
